FAERS Safety Report 24184898 (Version 1)
Quarter: 2024Q3

REPORT INFORMATION
  Report Type: Spontaneous
  Country: JP (occurrence: JP)
  Receive Date: 20240807
  Receipt Date: 20240807
  Transmission Date: 20241017
  Serious: Yes (Other)
  Sender: GUERBET
  Company Number: JP-GUERBETG_JAPAN-JP-20240108

PATIENT
  Age: 51 Year
  Sex: Female

DRUGS (2)
  1. LIPIODOL [Suspect]
     Active Substance: ETHIODIZED OIL
     Indication: Therapeutic embolisation
     Dosage: LIPIODOL MIXED WITH N-BUTYL-2-CYANOACRYLATE (NBCA).
     Route: 013
  2. ENBUCRILATE [Suspect]
     Active Substance: ENBUCRILATE
     Indication: Therapeutic embolisation
     Dosage: LIPIODOL MIXED WITH N-BUTYL-2-CYANOACRYLATE (NBCA).
     Route: 013

REACTIONS (2)
  - Abdominal pain [Unknown]
  - Intestinal ischaemia [Unknown]
